FAERS Safety Report 14799463 (Version 5)
Quarter: 2018Q2

REPORT INFORMATION
  Report Type: Spontaneous
  Country: US (occurrence: US)
  Receive Date: 20180424
  Receipt Date: 20180622
  Transmission Date: 20180711
  Serious: Yes (Hospitalization, Other)
  Sender: FDA-Public Use
  Company Number: US-VIIV HEALTHCARE LIMITED-US2018GSK070502

PATIENT
  Age: 57 Year
  Sex: Female
  Weight: 69.3 kg

DRUGS (25)
  1. TIVICAY [Suspect]
     Active Substance: DOLUTEGRAVIR SODIUM
     Indication: HIV INFECTION
     Dosage: 50 MG, U
     Route: 048
     Dates: start: 20160922, end: 20180413
  2. REMERON [Concomitant]
     Active Substance: MIRTAZAPINE
  3. CHOLECALCIFEROL [Concomitant]
     Active Substance: CHOLECALCIFEROL
  4. BIKTARVY [Concomitant]
     Active Substance: BICTEGRAVIR SODIUM\EMTRICITABINE\TENOFOVIR ALAFENAMIDE FUMARATE
     Dosage: UNK
     Dates: start: 20180425
  5. ENDOCET [Concomitant]
     Active Substance: ACETAMINOPHEN\OXYCODONE HYDROCHLORIDE
  6. VOLTAREN [Concomitant]
     Active Substance: DICLOFENAC SODIUM
  7. DUONEB [Concomitant]
     Active Substance: ALBUTEROL SULFATE\IPRATROPIUM BROMIDE
  8. TOPROL XL [Concomitant]
     Active Substance: METOPROLOL SUCCINATE
  9. DESCOVY [Suspect]
     Active Substance: EMTRICITABINE\TENOFOVIR ALAFENAMIDE FUMARATE
     Indication: HIV INFECTION
     Dosage: 1 DF, U
     Route: 048
     Dates: start: 20160922, end: 20180413
  10. CYMBALTA [Concomitant]
     Active Substance: DULOXETINE HYDROCHLORIDE
  11. FLONASE [Concomitant]
     Active Substance: FLUTICASONE PROPIONATE
  12. ADVAIR HFA [Concomitant]
     Active Substance: FLUTICASONE PROPIONATE\SALMETEROL XINAFOATE
  13. NEURONTIN [Concomitant]
     Active Substance: GABAPENTIN
  14. PROVENTIL HFA [Concomitant]
     Active Substance: ALBUTEROL SULFATE
  15. MINIPRESS [Concomitant]
     Active Substance: PRAZOSIN HYDROCHLORIDE
  16. ASPIRIN. [Concomitant]
     Active Substance: ASPIRIN
  17. PROVENTIL [Concomitant]
     Active Substance: ALBUTEROL
  18. SEROQUEL [Concomitant]
     Active Substance: QUETIAPINE FUMARATE
  19. ZOFRAN [Concomitant]
     Active Substance: ONDANSETRON HYDROCHLORIDE
  20. PROTONIX [Concomitant]
     Active Substance: PANTOPRAZOLE SODIUM
  21. WELLBUTRIN [Concomitant]
     Active Substance: BUPROPION HYDROCHLORIDE
  22. DITROPAN [Concomitant]
     Active Substance: OXYBUTYNIN CHLORIDE
  23. LIPITOR [Concomitant]
     Active Substance: ATORVASTATIN CALCIUM
  24. COZAAR [Concomitant]
     Active Substance: LOSARTAN POTASSIUM
  25. NALOXONE [Concomitant]
     Active Substance: NALOXONE

REACTIONS (10)
  - Amylase increased [Unknown]
  - Abdominal pain [Not Recovered/Not Resolved]
  - Dizziness [Not Recovered/Not Resolved]
  - Chest pain [Not Recovered/Not Resolved]
  - Loss of consciousness [Recovered/Resolved]
  - Head injury [Unknown]
  - Pancreatitis [Recovered/Resolved]
  - Fall [Unknown]
  - Lipase increased [Not Recovered/Not Resolved]
  - Nausea [Not Recovered/Not Resolved]

NARRATIVE: CASE EVENT DATE: 20180412
